FAERS Safety Report 6929073-9 (Version None)
Quarter: 2010Q3

REPORT INFORMATION
  Report Type: 
  Country: None (occurrence: None)
  Receive Date: 20100811
  Receipt Date: 20100803
  Transmission Date: 20110219
  Serious: Yes (Other)
  Sender: FDA-Public Use
  Company Number: GB-1182754

PATIENT
  Age: 90 Year
  Sex: Male

DRUGS (5)
  1. MAXIDEX [Suspect]
     Indication: POSTOPERATIVE CARE
     Dosage: TID OPHTHALMIC
     Route: 047
     Dates: start: 20100710, end: 20100714
  2. XALATAN [Concomitant]
  3. RANITIDINE [Concomitant]
  4. NICORANDIL (NICORANDIL) [Concomitant]
  5. FELODIPINE [Concomitant]

REACTIONS (7)
  - DRY MOUTH [None]
  - LIP SWELLING [None]
  - MOUTH ULCERATION [None]
  - OEDEMA MOUTH [None]
  - ORAL MUCOSA ATROPHY [None]
  - ORAL PAIN [None]
  - OROPHARYNGEAL PAIN [None]
